FAERS Safety Report 8922041 (Version 1)
Quarter: 2012Q4

REPORT INFORMATION
  Report Type: 
  Country: BR (occurrence: BR)
  Receive Date: 20121123
  Receipt Date: 20121123
  Transmission Date: 20130627
  Serious: Yes (Other)
  Sender: FDA-Public Use
  Company Number: BR-PFIZER INC-2012292380

PATIENT
  Age: 61 Year
  Sex: Female

DRUGS (4)
  1. LYRICA [Suspect]
     Dosage: UNK
  2. SEROQUEL [Concomitant]
     Dosage: UNK
  3. RIVOTRIL [Concomitant]
     Dosage: UNK
  4. ZOLOFT [Concomitant]
     Indication: DEPRESSION
     Dosage: UNK

REACTIONS (2)
  - Renal cancer stage I [Unknown]
  - Depression [Unknown]
